FAERS Safety Report 6934661-X (Version None)
Quarter: 2010Q3

REPORT INFORMATION
  Report Type: 
  Country: None (occurrence: None)
  Receive Date: 20100820
  Receipt Date: 20100813
  Transmission Date: 20110219
  Serious: Yes (Other)
  Sender: FDA-Public Use
  Company Number: US-ABBOTT-10P-163-0664050-00

PATIENT
  Sex: Female
  Weight: 67.646 kg

DRUGS (3)
  1. SYNTHROID [Suspect]
     Indication: GOITRE
     Dates: start: 20100608, end: 20100608
  2. CALCIUM WITH D [Concomitant]
     Indication: MINERAL SUPPLEMENTATION
  3. BIOIDENTICAL HORMONE CREAM [Concomitant]
     Indication: HORMONE REPLACEMENT THERAPY

REACTIONS (4)
  - DYSPHAGIA [None]
  - FUNGAL INFECTION [None]
  - HYPERTENSION [None]
  - THROAT TIGHTNESS [None]
